FAERS Safety Report 8566990-0 (Version None)
Quarter: 2012Q3

REPORT INFORMATION
  Report Type: 
  Country: None (occurrence: None)
  Receive Date: 20120803
  Receipt Date: 20111216
  Transmission Date: 20120928
  Serious: No
  Sender: FDA-Public Use
  Company Number: US-ABBOTT-11P-163-0884180-00

PATIENT
  Sex: Male

DRUGS (6)
  1. NIASPAN [Suspect]
  2. NIASPAN [Suspect]
     Route: 048
     Dates: start: 20110901
  3. UNKNOWN MEDICATIONS [Concomitant]
     Indication: PRODUCT USED FOR UNKNOWN INDICATION
  4. ASPIRIN [Concomitant]
     Indication: PRODUCT USED FOR UNKNOWN INDICATION
     Dosage: 30 MINUTES PRIOR TO NIASPAN COATED
     Route: 048
  5. NIASPAN [Suspect]
     Route: 048
  6. NIASPAN [Suspect]
     Indication: HIGH DENSITY LIPOPROTEIN DECREASED
     Route: 048
     Dates: start: 20090101, end: 20100101

REACTIONS (2)
  - PRURITUS [None]
  - RASH GENERALISED [None]
